FAERS Safety Report 23784234 (Version 1)
Quarter: 2024Q2

REPORT INFORMATION
  Report Type: Other
  Country: US (occurrence: US)
  Receive Date: 20240425
  Receipt Date: 20240425
  Transmission Date: 20240716
  Serious: Yes (Other)
  Sender: FDA-Public Use
  Company Number: US-BoehringerIngelheim-2024-BI-022248

PATIENT
  Age: 35 Year
  Sex: Male

DRUGS (4)
  1. TENECTEPLASE [Suspect]
     Active Substance: TENECTEPLASE
     Indication: Acute myocardial infarction
     Route: 065
  2. ASPIRIN [Concomitant]
     Active Substance: ASPIRIN
  3. BARICITINIB [Concomitant]
     Active Substance: BARICITINIB
  4. DEXAMETHASONE [Concomitant]
     Active Substance: DEXAMETHASONE

REACTIONS (4)
  - Brain herniation [Unknown]
  - Ischaemic stroke [Unknown]
  - Coronary artery thrombosis [Unknown]
  - Unresponsive to stimuli [Unknown]
